FAERS Safety Report 8949458 (Version 2)
Quarter: 2013Q1

REPORT INFORMATION
  Report Type: Spontaneous
  Country: US (occurrence: US)
  Receive Date: 20121206
  Receipt Date: 20130213
  Transmission Date: 20140127
  Serious: Yes (Death)
  Sender: FDA-Public Use
  Company Number: US-PFIZER INC-2012303218

PATIENT
  Age: 81 Year
  Sex: Female

DRUGS (8)
  1. XALKORI [Suspect]
     Indication: NEOPLASM MALIGNANT
     Dosage: 250 MG, 1X/DAY (EVERY NIGHT)
     Route: 048
  2. ZOCOR [Concomitant]
     Dosage: 10 MG, UNK
     Route: 048
  3. AZOR [Concomitant]
     Dosage: UNK, 10-40MG
     Route: 048
  4. ATIVAN [Concomitant]
     Dosage: 2 MG, UNK
  5. ACIPHEX [Concomitant]
     Dosage: 20 MG, UNK
     Route: 048
  6. NUCYNTA [Concomitant]
     Dosage: 100 MG, UNK
     Route: 048
  7. ACTONEL [Concomitant]
     Dosage: 150 MG, UNK
     Route: 048
  8. ASPIRIN [Concomitant]
     Dosage: 81 MG, UNK
     Route: 048

REACTIONS (1)
  - Death [Fatal]
